FAERS Safety Report 24854340 (Version 1)
Quarter: 2025Q1

REPORT INFORMATION
  Report Type: Report from Study
  Country: CO (occurrence: CO)
  Receive Date: 20250117
  Receipt Date: 20250117
  Transmission Date: 20250408
  Serious: Yes (Hospitalization)
  Sender: JOHNSON AND JOHNSON
  Company Number: CO-JNJFOC-20250126507

PATIENT
  Age: 75 Year
  Sex: Male
  Weight: 55 kg

DRUGS (1)
  1. DARZALEX [Suspect]
     Active Substance: DARATUMUMAB
     Indication: Plasma cell myeloma
     Route: 042
     Dates: start: 20241218

REACTIONS (1)
  - Hospitalisation [Recovered/Resolved]

NARRATIVE: CASE EVENT DATE: 20241218
